FAERS Safety Report 9387652 (Version 1)
Quarter: 2013Q3

REPORT INFORMATION
  Report Type: Spontaneous
  Country: CA (occurrence: CA)
  Receive Date: 20130708
  Receipt Date: 20130708
  Transmission Date: 20140515
  Serious: Yes (Other)
  Sender: FDA-Public Use
  Company Number: CA-ASTELLAS-2013US007080

PATIENT
  Sex: Male
  Weight: 86 kg

DRUGS (1)
  1. MYRBETRIQ [Suspect]
     Indication: HYPERTONIC BLADDER
     Dosage: 50 MG, UNKNOWN/D
     Route: 048
     Dates: start: 20130506

REACTIONS (2)
  - Diabetes mellitus [Unknown]
  - Urine flow decreased [Not Recovered/Not Resolved]
